FAERS Safety Report 17784296 (Version 10)
Quarter: 2025Q2

REPORT INFORMATION
  Report Type: Report from Study
  Country: DO (occurrence: DO)
  Receive Date: 20200514
  Receipt Date: 20250513
  Transmission Date: 20250716
  Serious: Yes (Hospitalization, Disabling, Other)
  Sender: NOVARTIS
  Company Number: DO-NOVARTISPH-PHHY2018DO124818

PATIENT
  Age: 76 Year
  Sex: Female

DRUGS (15)
  1. EXFORGE [Suspect]
     Active Substance: AMLODIPINE BESYLATE\VALSARTAN
     Indication: Hypertension
     Dosage: 1 DOSAGE FORM, QD (80 MG)
     Route: 048
     Dates: start: 201105
  2. DIOVAN [Suspect]
     Active Substance: VALSARTAN
     Indication: Hypertension
     Route: 048
  3. DIOVAN [Suspect]
     Active Substance: VALSARTAN
     Dosage: 160 MG, BID
     Route: 048
     Dates: start: 2018
  4. DIOVAN [Suspect]
     Active Substance: VALSARTAN
     Route: 048
  5. DIOVAN [Suspect]
     Active Substance: VALSARTAN
     Dosage: 160 MG, BID (ONE IN THE MORNING AND ONE AT NIGHT)
     Route: 048
     Dates: start: 2019
  6. DIOVAN [Suspect]
     Active Substance: VALSARTAN
     Dosage: 160 MG, BID
     Route: 048
     Dates: start: 202312
  7. DIOVAN [Suspect]
     Active Substance: VALSARTAN
     Dosage: UNK, QD (DOSE ADJUSTED)
     Route: 065
  8. DIOVAN [Suspect]
     Active Substance: VALSARTAN
     Dosage: 160 MG, BID, EVERY 12 HOURS
     Route: 048
  9. DIOVAN [Suspect]
     Active Substance: VALSARTAN
     Dosage: 160 MG, BID (ONE IN THE MORNING AND ONE AT NIGHT)
     Route: 048
  10. DIOVAN [Suspect]
     Active Substance: VALSARTAN
     Dosage: 160 MG, QD
     Route: 048
  11. METFORMIN HYDROCHLORIDE\VILDAGLIPTIN [Suspect]
     Active Substance: METFORMIN HYDROCHLORIDE\VILDAGLIPTIN
     Indication: Diabetes mellitus
     Dosage: 50 MG, QD
     Route: 048
     Dates: start: 202312
  12. VILDAGLIPTIN [Suspect]
     Active Substance: VILDAGLIPTIN
     Indication: Diabetes mellitus
     Dosage: 50 MG, BID
     Route: 048
  13. VILDAGLIPTIN [Suspect]
     Active Substance: VILDAGLIPTIN
     Indication: Weight decreased
     Dosage: 2 DOSAGE FORM (50 MG), QD
     Route: 048
     Dates: start: 202312, end: 20241005
  14. DIMETHYL FUMARATE [Concomitant]
     Active Substance: DIMETHYL FUMARATE
     Indication: Product used for unknown indication
     Route: 065
  15. PLAVIX [Concomitant]
     Active Substance: CLOPIDOGREL BISULFATE
     Indication: Product used for unknown indication
     Route: 065

REACTIONS (33)
  - Cataract [Recovered/Resolved]
  - Spinal fracture [Unknown]
  - Blood glucose increased [Recovering/Resolving]
  - Hypertension [Recovered/Resolved]
  - Macular oedema [Recovered/Resolved]
  - Gastrointestinal haemorrhage [Recovered/Resolved]
  - Diabetes mellitus [Unknown]
  - Haematochezia [Unknown]
  - Peripheral swelling [Recovered/Resolved]
  - Memory impairment [Unknown]
  - Anger [Unknown]
  - Fluid retention [Unknown]
  - Hypoacusis [Unknown]
  - Stress [Unknown]
  - Hyperglycaemia [Unknown]
  - Dyspepsia [Recovering/Resolving]
  - Weight decreased [Unknown]
  - Haemorrhage [Unknown]
  - Nervousness [Unknown]
  - Dysbiosis [Unknown]
  - Malnutrition [Recovered/Resolved]
  - Food refusal [Unknown]
  - General physical health deterioration [Unknown]
  - Fatigue [Unknown]
  - Off label use [Unknown]
  - Abdominal discomfort [Unknown]
  - Iron deficiency [Unknown]
  - Panic disorder [Unknown]
  - Peripheral swelling [Recovering/Resolving]
  - Blood pressure decreased [Unknown]
  - Underweight [Unknown]
  - Drug ineffective [Unknown]
  - Fall [Unknown]

NARRATIVE: CASE EVENT DATE: 20240214
